FAERS Safety Report 15941299 (Version 2)
Quarter: 2019Q1

REPORT INFORMATION
  Report Type: Spontaneous
  Country: FR (occurrence: FR)
  Receive Date: 20190208
  Receipt Date: 20190226
  Transmission Date: 20190417
  Serious: Yes (Other)
  Sender: FDA-Public Use
  Company Number: FR-SEPTODONT-201804932

PATIENT
  Age: 28 Year
  Sex: Female

DRUGS (2)
  1. SEPTANEST ADR?NALIN?E [Suspect]
     Active Substance: ARTICAINE HYDROCHLORIDE\EPINEPHRINE BITARTRATE
     Indication: DENTAL LOCAL ANAESTHESIA
     Dosage: 1 CARTRIDGE BY PERIAPICAL ROUTE
     Route: 004
     Dates: start: 20181205
  2. SEPTANEST ADR?NALIN?E [Suspect]
     Active Substance: ARTICAINE HYDROCHLORIDE\EPINEPHRINE BITARTRATE
     Indication: DENTAL LOCAL ANAESTHESIA
     Dosage: 1 CARTRIDGE BY TRONCULAR ROUTE
     Route: 004
     Dates: start: 20181205

REACTIONS (6)
  - Angioedema [Recovered/Resolved]
  - Dysphagia [Recovered/Resolved]
  - Dysphonia [Recovered/Resolved]
  - Hypertension [Recovered/Resolved]
  - Tachycardia [Recovered/Resolved]
  - Exposure during pregnancy [Unknown]

NARRATIVE: CASE EVENT DATE: 20181205
